FAERS Safety Report 5441258-X (Version None)
Quarter: 2007Q3

REPORT INFORMATION
  Report Type: 
  Country: None (occurrence: None)
  Receive Date: 20070901
  Receipt Date: 20070824
  Transmission Date: 20080115
  Serious: Yes (Other)
  Sender: FDA-Public Use
  Company Number: AU-PFIZER INC-2007071077

PATIENT
  Age: 67 Year
  Sex: Male

DRUGS (3)
  1. LIPITOR [Suspect]
  2. CADUET [Suspect]
     Dosage: TEXT:10/40MG
     Dates: start: 20070621, end: 20070806
  3. PANTOPRAZOLE SODIUM [Concomitant]

REACTIONS (3)
  - CORONARY ARTERY OCCLUSION [None]
  - HYPERTENSION [None]
  - OEDEMA [None]
